FAERS Safety Report 8922088 (Version 2)
Quarter: 2012Q4

REPORT INFORMATION
  Report Type: 
  Country: AU (occurrence: AU)
  Receive Date: 20121123
  Receipt Date: 20121130
  Transmission Date: 20130627
  Serious: Yes (Other)
  Sender: FDA-Public Use
  Company Number: PHHY2012AU106073

PATIENT
  Age: 73 Year
  Sex: Female

DRUGS (3)
  1. ACLASTA [Suspect]
     Dosage: 5 mg, UNK
     Route: 042
     Dates: start: 20091112, end: 20091112
  2. ACLASTA [Suspect]
     Dosage: 5 mg, UNK
     Route: 042
     Dates: start: 20101126, end: 20101126
  3. ACLASTA [Suspect]
     Dosage: 5 mg, UNK
     Route: 042
     Dates: start: 20111118, end: 20111118

REACTIONS (5)
  - Lower respiratory tract infection [Recovering/Resolving]
  - Dyspnoea [Unknown]
  - Asthenia [Unknown]
  - Pain in extremity [Unknown]
  - Hyperhidrosis [Unknown]
